FAERS Safety Report 8803362 (Version 2)
Quarter: 2012Q4

REPORT INFORMATION
  Report Type: 
  Country: FR (occurrence: FR)
  Receive Date: 20120924
  Receipt Date: 20121009
  Transmission Date: 20130627
  Serious: Yes (Hospitalization, Other)
  Sender: FDA-Public Use
  Company Number: PHHY2012FR082295

PATIENT
  Age: 56 Year
  Sex: Female

DRUGS (9)
  1. LEPONEX [Suspect]
     Indication: BIPOLAR DISORDER
     Dosage: 500 mg, daily
     Route: 048
  2. LYRICA [Suspect]
     Indication: SCHIZOAFFECTIVE DISORDER
     Route: 048
     Dates: start: 201206
  3. LYRICA [Suspect]
     Dosage: 150 mg, daily
     Dates: start: 20120822, end: 20120829
  4. LYSANXIA [Suspect]
     Indication: BIPOLAR DISORDER
     Dosage: 60 mg, daily
     Dates: end: 20120829
  5. LYSANXIA [Suspect]
     Dosage: UNK
  6. IMOVANE [Suspect]
     Dosage: 1 DF, daily
     Route: 048
     Dates: end: 20120829
  7. EBIXA [Suspect]
     Indication: COGNITIVE DISORDER
     Dosage: 10 mg, daily
     Route: 048
     Dates: end: 20120829
  8. VESICARE [Suspect]
     Indication: URINARY INCONTINENCE
     Route: 048
     Dates: end: 20120829
  9. DOLIPRANE [Concomitant]

REACTIONS (5)
  - Disturbance in attention [Recovered/Resolved]
  - Speech disorder [Recovered/Resolved]
  - Hypotension [Unknown]
  - Hypophagia [Unknown]
  - Anxiety [Unknown]
